FAERS Safety Report 4451628-4 (Version None)
Quarter: 2004Q3

REPORT INFORMATION
  Report Type: 
  Country: None (occurrence: None)
  Receive Date: 20040915
  Receipt Date: 20040831
  Transmission Date: 20050211
  Serious: Yes (Hospitalization)
  Sender: FDA-Public Use
  Company Number: 2004-00289

PATIENT
  Age: 72 Year
  Sex: Male
  Weight: 63.7 kg

DRUGS (8)
  1. VELCADE [Suspect]
     Indication: MULTIPLE MYELOMA
     Dosage: 2.24MG, UNK, IV BOLUS
     Route: 040
     Dates: start: 20040705
  2. NYSTATIN [Concomitant]
  3. CORSODYL (CHLORHEXIDINE GLUCCONATE) [Concomitant]
  4. ALLOPURINOL [Concomitant]
  5. ACYCLOVIR [Concomitant]
  6. LANSOPRAZOLE [Concomitant]
  7. SODIUM CHLORIDE INJ [Concomitant]
  8. ADALAT (NOFEDIPINE) [Concomitant]

REACTIONS (4)
  - ARRHYTHMIA [None]
  - HEART RATE IRREGULAR [None]
  - SENSORY DISTURBANCE [None]
  - VENTRICULAR EXTRASYSTOLES [None]
